FAERS Safety Report 19900493 (Version 1)
Quarter: 2021Q3

REPORT INFORMATION
  Report Type: Spontaneous
  Country: US (occurrence: US)
  Receive Date: 20210929
  Receipt Date: 20210929
  Transmission Date: 20211014
  Serious: No
  Sender: FDA-Public Use
  Company Number: None

PATIENT
  Age: 74 Year
  Sex: Male
  Weight: 109 kg

DRUGS (1)
  1. DAPTOMYCIN (DAPTOMYCIN 250MG/VIL INJ) [Suspect]
     Active Substance: DAPTOMYCIN
     Indication: PNEUMONITIS
     Route: 042
     Dates: start: 20210318, end: 20210319

REACTIONS (1)
  - Hypersensitivity pneumonitis [None]

NARRATIVE: CASE EVENT DATE: 20210426
